FAERS Safety Report 10244228 (Version 1)
Quarter: 2014Q2

REPORT INFORMATION
  Report Type: Spontaneous
  Country: US (occurrence: US)
  Receive Date: 20140618
  Receipt Date: 20140618
  Transmission Date: 20141212
  Serious: No
  Sender: FDA-Public Use
  Company Number: US-B.I. PHARMACEUTICALS,INC./RIDGEFIELD-2014-BI-25991BP

PATIENT
  Age: 58 Year
  Sex: Male

DRUGS (6)
  1. COMBIVENT [Suspect]
     Indication: CHRONIC OBSTRUCTIVE PULMONARY DISEASE
     Dosage: DOSE PER APPLICATION: 20 MCG / 200 MCG; DAILY DOSE: 120 MCG/ 600 MCG
     Route: 055
     Dates: start: 201403
  2. NORCO [Concomitant]
     Indication: PAIN
     Route: 048
  3. FLOMAX [Concomitant]
     Indication: PROSTATOMEGALY
     Route: 048
  4. SINGULAIR [Concomitant]
     Route: 048
  5. ADVAIR [Concomitant]
     Route: 055
  6. COZAAR [Concomitant]
     Indication: HYPERTENSION
     Route: 048

REACTIONS (3)
  - Weight increased [Not Recovered/Not Resolved]
  - Drug ineffective [Not Recovered/Not Resolved]
  - Product quality issue [Not Recovered/Not Resolved]
